FAERS Safety Report 17898091 (Version 1)
Quarter: 2020Q2

REPORT INFORMATION
  Report Type: Spontaneous
  Country: US (occurrence: US)
  Receive Date: 20200615
  Receipt Date: 20200615
  Transmission Date: 20200714
  Serious: No
  Sender: FDA-Public Use
  Company Number: US-GALDERMA-US2020019222

PATIENT

DRUGS (2)
  1. DIFFERIN GEL [Suspect]
     Active Substance: ADAPALENE
     Indication: SKIN WRINKLING
     Dosage: 0.1%
     Route: 061
  2. MOISTURIZER [Concomitant]
     Active Substance: UNSPECIFIED INGREDIENT
     Indication: PRODUCT USED FOR UNKNOWN INDICATION
     Route: 065

REACTIONS (4)
  - Erythema [Unknown]
  - Skin irritation [Unknown]
  - Intentional product misuse [Recovered/Resolved]
  - Sensitive skin [Unknown]
